FAERS Safety Report 17429669 (Version 2)
Quarter: 2020Q1

REPORT INFORMATION
  Report Type: Spontaneous
  Country: US (occurrence: US)
  Receive Date: 20200218
  Receipt Date: 20200309
  Transmission Date: 20200409
  Serious: No
  Sender: FDA-Public Use
  Company Number: US-ASTRAZENECA-2020SE15191

PATIENT
  Age: 744 Month
  Sex: Female
  Weight: 149.7 kg

DRUGS (1)
  1. BYDUREON BCISE [Suspect]
     Active Substance: EXENATIDE
     Indication: TYPE 2 DIABETES MELLITUS
     Route: 058
     Dates: start: 20191229

REACTIONS (6)
  - Injection site extravasation [Recovered/Resolved]
  - Injection site indentation [Not Recovered/Not Resolved]
  - Bone disorder [Recovering/Resolving]
  - Device leakage [Unknown]
  - Nausea [Not Recovered/Not Resolved]
  - Drug dose omission by device [Unknown]

NARRATIVE: CASE EVENT DATE: 201912
